FAERS Safety Report 8531620-0 (Version None)
Quarter: 2012Q3

REPORT INFORMATION
  Report Type: 
  Country: None (occurrence: None)
  Receive Date: 20120723
  Receipt Date: 20120713
  Transmission Date: 20120928
  Serious: Yes (Hospitalization, Other)
  Sender: FDA-Public Use
  Company Number: US-BAXTER-2012BAX010070

PATIENT
  Sex: Male

DRUGS (3)
  1. DIANEAL [Suspect]
     Indication: PERITONEAL DIALYSIS
     Route: 033
     Dates: start: 20110314
  2. DIANEAL [Suspect]
     Route: 033
     Dates: start: 20110314
  3. EXTRANEAL [Suspect]
     Indication: PERITONEAL DIALYSIS
     Route: 033
     Dates: start: 20110314

REACTIONS (5)
  - CARDIAC DISORDER [None]
  - CARDIAC VALVE DISEASE [None]
  - HYPOTENSION [None]
  - OEDEMA PERIPHERAL [None]
  - CARDIAC FAILURE [None]
